FAERS Safety Report 7865106-3 (Version None)
Quarter: 2011Q4

REPORT INFORMATION
  Report Type: 
  Country: None (occurrence: None)
  Receive Date: 20111028
  Receipt Date: 20101014
  Transmission Date: 20120403
  Serious: Yes (Other)
  Sender: FDA-Public Use
  Company Number: US-GLAXOSMITHKLINE-A0886737A

PATIENT
  Sex: Female

DRUGS (5)
  1. COUMADIN [Concomitant]
  2. METOPROLOL TARTRATE [Concomitant]
  3. ADVAIR DISKUS 100/50 [Suspect]
     Indication: BRONCHITIS CHRONIC
     Dosage: 1PUFF TWICE PER DAY
     Route: 055
     Dates: start: 20081001, end: 20101001
  4. FUROSEMIDE [Concomitant]
  5. FLOVENT [Suspect]
     Indication: BRONCHITIS CHRONIC
     Dosage: 1PUFF TWICE PER DAY
     Route: 055
     Dates: start: 20101012

REACTIONS (2)
  - DRUG INEFFECTIVE [None]
  - PNEUMONIA [None]
